FAERS Safety Report 11412132 (Version 2)
Quarter: 2015Q3

REPORT INFORMATION
  Report Type: Spontaneous
  Country: US (occurrence: US)
  Receive Date: 20150821
  Receipt Date: 20150903
  Transmission Date: 20151125
  Serious: No
  Sender: FDA-Public Use
  Company Number: US-ELI_LILLY_AND_COMPANY-US201202007114

PATIENT
  Sex: Female

DRUGS (6)
  1. BYETTA [Concomitant]
     Active Substance: EXENATIDE
     Dosage: UNK
  2. HUMULIN R [Suspect]
     Active Substance: INSULIN HUMAN
     Indication: DIABETES MELLITUS
     Dosage: UNK, PRN
     Dates: start: 2004, end: 2010
  3. HUMALOG MIX75/25 [Suspect]
     Active Substance: INSULIN LISPRO
     Indication: DIABETES MELLITUS
     Dosage: 50 U, BID
     Dates: start: 2010
  4. PREDNISONE. [Concomitant]
     Active Substance: PREDNISONE
     Dosage: UNK
  5. PROGRAF [Concomitant]
     Active Substance: TACROLIMUS\TACROLIMUS ANHYDROUS
     Dosage: UNK
  6. CELLCEPT [Concomitant]
     Active Substance: MYCOPHENOLATE MOFETIL\MYCOPHENOLATE MOFETIL HYDROCHLORIDE
     Dosage: UNK

REACTIONS (2)
  - Blood glucose increased [Recovered/Resolved]
  - Macular degeneration [Not Recovered/Not Resolved]

NARRATIVE: CASE EVENT DATE: 2010
